FAERS Safety Report 14981973 (Version 4)
Quarter: 2018Q3

REPORT INFORMATION
  Report Type: Report from Study
  Country: GB (occurrence: GB)
  Receive Date: 20180607
  Receipt Date: 20180918
  Transmission Date: 20181010
  Serious: Yes (Other)
  Sender: FDA-Public Use
  Company Number: GB-BRISTOL-MYERS SQUIBB COMPANY-BMS-2018-052613

PATIENT
  Sex: Male

DRUGS (1)
  1. ABATACEPT [Suspect]
     Active Substance: ABATACEPT
     Indication: OSTEOPOROSIS
     Dosage: 125 MG, QWK
     Route: 058
     Dates: start: 20171006

REACTIONS (3)
  - Drug ineffective [Unknown]
  - Pericarditis [Unknown]
  - Product use in unapproved indication [Unknown]
